FAERS Safety Report 18785680 (Version 1)
Quarter: 2021Q1

REPORT INFORMATION
  Report Type: Spontaneous
  Country: US (occurrence: US)
  Receive Date: 20210125
  Receipt Date: 20210125
  Transmission Date: 20210419
  Serious: No
  Sender: FDA-Public Use
  Company Number: US-ROCHE-2613102

PATIENT
  Sex: Female

DRUGS (1)
  1. RITUXAN [Suspect]
     Active Substance: RITUXIMAB
     Indication: RHEUMATOID ARTHRITIS
     Dosage: SDV 50 MG/ML?STRENGTH: 10 MG/ML
     Route: 042
     Dates: start: 20171205

REACTIONS (2)
  - Condition aggravated [Unknown]
  - Arthralgia [Unknown]
